FAERS Safety Report 7446627-4 (Version None)
Quarter: 2011Q2

REPORT INFORMATION
  Report Type: 
  Country: None (occurrence: None)
  Receive Date: 20110419
  Receipt Date: 20110407
  Transmission Date: 20111010
  Serious: Yes (Other)
  Sender: FDA-Public Use
  Company Number: 2011MA003655

PATIENT

DRUGS (1)
  1. METOCLOPRAMIDE HCL [Suspect]
     Dates: start: 20030601, end: 20090701

REACTIONS (4)
  - ECONOMIC PROBLEM [None]
  - TARDIVE DYSKINESIA [None]
  - EXTRAPYRAMIDAL DISORDER [None]
  - EMOTIONAL DISORDER [None]
